FAERS Safety Report 15237627 (Version 1)
Quarter: 2018Q3

REPORT INFORMATION
  Report Type: Spontaneous
  Country: FR (occurrence: FR)
  Receive Date: 20180803
  Receipt Date: 20180803
  Transmission Date: 20181010
  Serious: Yes (Hospitalization, Other)
  Sender: FDA-Public Use
  Company Number: FR-GLAXOSMITHKLINE-FR2018GSK138443

PATIENT
  Age: 63 Year
  Sex: Male
  Weight: 84 kg

DRUGS (3)
  1. TOPREC [Suspect]
     Active Substance: KETOPROFEN
     Indication: INFLAMMATORY PAIN
     Dosage: 75 MG, QD (25 MG)
     Route: 048
     Dates: start: 20180308, end: 20180314
  2. CHLORHEXIDINE GLUCONATE + CHLOROBUTANOL [Concomitant]
     Indication: PRODUCT USED FOR UNKNOWN INDICATION
     Dosage: UNK
     Dates: start: 20180308, end: 20180314
  3. ACICLOVIR [Suspect]
     Active Substance: ACYCLOVIR
     Indication: HERPES SIMPLEX
     Dosage: 1000 MG, QD (200 MG)
     Route: 048
     Dates: start: 20180308, end: 20180316

REACTIONS (2)
  - Thrombocytopenia [Recovering/Resolving]
  - Purpura [Recovering/Resolving]

NARRATIVE: CASE EVENT DATE: 20180314
